FAERS Safety Report 5466014-8 (Version None)
Quarter: 2007Q3

REPORT INFORMATION
  Report Type: 
  Country: None (occurrence: None)
  Receive Date: 20070924
  Receipt Date: 20070918
  Transmission Date: 20080115
  Serious: Yes (Hospitalization)
  Sender: FDA-Public Use
  Company Number: US-BOEHRINGER INGELHEIM PHARMACEUTICALS, INC.-2007-BP-21247BP

PATIENT
  Age: 43 Year
  Sex: Male

DRUGS (4)
  1. MICARDIS HCT [Suspect]
     Indication: HYPERTENSION
     Route: 048
     Dates: start: 20070826
  2. RITALIN [Concomitant]
  3. TRICOR [Concomitant]
  4. COLCHICINE [Concomitant]

REACTIONS (2)
  - CHEST PAIN [None]
  - HEPATIC ENZYME INCREASED [None]
